FAERS Safety Report 12676237 (Version 1)
Quarter: 2016Q3

REPORT INFORMATION
  Report Type: Spontaneous
  Country: GB (occurrence: GB)
  Receive Date: 20160823
  Receipt Date: 20160823
  Transmission Date: 20161109
  Serious: Yes (Death, Congenital Anomaly)
  Sender: FDA-Public Use
  Company Number: GB-BIOGEN-2016BI00279891

PATIENT
  Sex: Female

DRUGS (1)
  1. TYSABRI [Suspect]
     Active Substance: NATALIZUMAB
     Indication: MATERNAL EXPOSURE TIMING UNSPECIFIED
     Route: 064
     Dates: start: 2010, end: 20140624

REACTIONS (3)
  - Congenital diaphragmatic hernia [Fatal]
  - Foetal exposure during pregnancy [Recovered/Resolved]
  - Tracheo-oesophageal fistula [Fatal]

NARRATIVE: CASE EVENT DATE: 2015
